FAERS Safety Report 6782999-1 (Version None)
Quarter: 2010Q2

REPORT INFORMATION
  Report Type: 
  Country: None (occurrence: None)
  Receive Date: 20100622
  Receipt Date: 20100611
  Transmission Date: 20101027
  Serious: Yes (Hospitalization)
  Sender: FDA-Public Use
  Company Number: US-JNJFOC-20100504647

PATIENT
  Sex: Female
  Weight: 9.53 kg

DRUGS (2)
  1. CONCENTRATED TYLENOL INFANT DROPS [Suspect]
     Route: 048
  2. CONCENTRATED TYLENOL INFANT DROPS [Suspect]
     Indication: PYREXIA
     Dosage: AS REQUIRED
     Route: 048

REACTIONS (3)
  - PRODUCT QUALITY ISSUE [None]
  - PYELONEPHRITIS [None]
  - WHITE BLOOD CELLS URINE POSITIVE [None]
